FAERS Safety Report 11888905 (Version 2)
Quarter: 2016Q1

REPORT INFORMATION
  Report Type: Spontaneous
  Country: CA (occurrence: CA)
  Receive Date: 20160105
  Receipt Date: 20160203
  Transmission Date: 20160526
  Serious: Yes (Other)
  Sender: FDA-Public Use
  Company Number: CA-CONCORDIA PHARMACEUTICALS INC.-CO-PL-CA-2015-442

PATIENT
  Sex: Male

DRUGS (6)
  1. HYDROXYCHLOROQUINE SULFATE. [Suspect]
     Active Substance: HYDROXYCHLOROQUINE SULFATE
     Indication: RHEUMATOID ARTHRITIS
     Route: 065
  2. DICLOFENAC [Concomitant]
     Active Substance: DICLOFENAC
  3. XELJANZ [Concomitant]
     Active Substance: TOFACITINIB CITRATE
     Dates: start: 20151114, end: 20151208
  4. ARAVA [Suspect]
     Active Substance: LEFLUNOMIDE
     Indication: RHEUMATOID ARTHRITIS
     Route: 065
  5. METHOTREXATE [Suspect]
     Active Substance: METHOTREXATE
     Indication: RHEUMATOID ARTHRITIS
     Route: 065
  6. SULFASALAZINE. [Concomitant]
     Active Substance: SULFASALAZINE
     Dates: start: 201308, end: 201311

REACTIONS (13)
  - Malaise [None]
  - Depression [None]
  - Dizziness [None]
  - Palpitations [None]
  - Cartilage injury [None]
  - Lethargy [None]
  - Tremor [None]
  - Drug ineffective [None]
  - Panic attack [None]
  - Nausea [None]
  - Night sweats [None]
  - Renal function test abnormal [None]
  - Grip strength decreased [None]

NARRATIVE: CASE EVENT DATE: 20151220
